FAERS Safety Report 7064720-5 (Version None)
Quarter: 2010Q4

REPORT INFORMATION
  Report Type: 
  Country: None (occurrence: None)
  Receive Date: 20101027
  Receipt Date: 20100308
  Transmission Date: 20110411
  Serious: Yes (Congenital Anomaly, Other)
  Sender: FDA-Public Use
  Company Number: FR-ROCHE-689229

PATIENT
  Sex: Female
  Weight: 3.5 kg

DRUGS (5)
  1. CLONAZEPAM [Suspect]
     Indication: EPILEPSY
     Route: 064
  2. LAMOTRIGINE [Suspect]
     Indication: EPILEPSY
     Route: 064
  3. TOPIRAMATE [Suspect]
     Indication: EPILEPSY
     Route: 064
  4. OXCARBAZEPINE [Suspect]
     Indication: EPILEPSY
     Route: 064
  5. FOLIC ACID [Suspect]
     Route: 064

REACTIONS (9)
  - BONE DEVELOPMENT ABNORMAL [None]
  - CONGENITAL ANOMALY [None]
  - CONGENITAL JAW MALFORMATION [None]
  - DYSMORPHISM [None]
  - EAR DISORDER [None]
  - LOW SET EARS [None]
  - MATERNAL DRUGS AFFECTING FOETUS [None]
  - MICROTIA [None]
  - RETROGNATHIA [None]
